FAERS Safety Report 9221063 (Version 2)
Quarter: 2013Q2

REPORT INFORMATION
  Report Type: Spontaneous
  Country: JP (occurrence: JP)
  Receive Date: 20130409
  Receipt Date: 20130409
  Transmission Date: 20140414
  Serious: Yes (Hospitalization, Other)
  Sender: FDA-Public Use
  Company Number: JP-GILEAD-2011-0047937

PATIENT
  Age: 29 Year
  Sex: Male

DRUGS (4)
  1. EMTRICITABINE/TENOFOVIR DISOPROXIL FUMARATE [Suspect]
     Indication: HIV INFECTION
     Dosage: 1 DF, QD
     Route: 048
     Dates: start: 201210
  2. PREZISTA [Suspect]
     Indication: HIV INFECTION
     Dosage: 800 MG, QD
     Route: 048
     Dates: start: 201012, end: 201104
  3. NORVIR [Suspect]
     Indication: HIV INFECTION
     Dosage: 100 MG, QD
     Route: 048
     Dates: start: 201012, end: 201104
  4. INTELENCE [Suspect]
     Indication: HIV INFECTION
     Dosage: 0.5 MG, QD
     Route: 048
     Dates: start: 201210

REACTIONS (3)
  - Non-Hodgkin^s lymphoma refractory [Recovering/Resolving]
  - Immune reconstitution inflammatory syndrome [Unknown]
  - Hepatitis [Recovered/Resolved]
